FAERS Safety Report 17160356 (Version 2)
Quarter: 2019Q4

REPORT INFORMATION
  Report Type: Spontaneous
  Country: DE (occurrence: DE)
  Receive Date: 20191216
  Receipt Date: 20191217
  Transmission Date: 20200122
  Serious: Yes (Hospitalization)
  Sender: FDA-Public Use
  Company Number: DE-MYLANLABS-2019M1123061

PATIENT
  Age: 86 Year
  Sex: Male

DRUGS (10)
  1. APIXABAN [Concomitant]
     Active Substance: APIXABAN
     Dosage: 2.5 MILLIGRAM, 1-0-1-0
  2. VENLAFAXIN [Concomitant]
     Active Substance: VENLAFAXINE HYDROCHLORIDE
     Dosage: 37.5 MILLIGRAM, 1-0-1-0
  3. KALIUM                             /00031401/ [Concomitant]
     Active Substance: POTASSIUM CHLORIDE
     Dosage: UNK (NK MG, 1-0-0-0, BRAUSETABLETTEN)
  4. ATORVASTATIN [Concomitant]
     Active Substance: ATORVASTATIN
     Dosage: 40 MILLIGRAM, 0-0-0-1
  5. TORASEMID [Concomitant]
     Active Substance: TORSEMIDE
     Dosage: 5 MILLIGRAM, 1-1-0-0
  6. PANTOPRAZOLE [Concomitant]
     Active Substance: PANTOPRAZOLE
     Dosage: 20 MILLIGRAM, 1-0-0-0
  7. METOPROLOL. [Suspect]
     Active Substance: METOPROLOL
     Indication: PRODUCT USED FOR UNKNOWN INDICATION
     Dosage: 95 MILLIGRAM (1-0-1-0)
     Route: 065
  8. EPLERENON 1A PHARMA [Concomitant]
     Active Substance: EPLERENONE
     Dosage: 25 MILLIGRAM, 1-0-0-0
  9. DIGITOXIN [Concomitant]
     Active Substance: DIGITOXIN
     Dosage: 0.07 MILLIGRAM, 1-0-0-0
  10. TAMSULOSIN [Concomitant]
     Active Substance: TAMSULOSIN
     Dosage: 0.4 MILLIGRAM, 1-0-0-0

REACTIONS (1)
  - Pain in extremity [Unknown]

NARRATIVE: CASE EVENT DATE: 20171212
